FAERS Safety Report 19777792 (Version 1)
Quarter: 2021Q3

REPORT INFORMATION
  Report Type: Spontaneous
  Country: IT (occurrence: IT)
  Receive Date: 20210902
  Receipt Date: 20210902
  Transmission Date: 20211014
  Serious: Yes (Other)
  Sender: FDA-Public Use
  Company Number: IT-SUN PHARMACEUTICAL INDUSTRIES LTD-2021RR-309879

PATIENT
  Age: 59 Year
  Sex: Male

DRUGS (1)
  1. SERTRALINE [Suspect]
     Active Substance: SERTRALINE HYDROCHLORIDE
     Indication: DRUG ABUSE
     Dosage: 2 DOSAGE FORM, IN TOTAL
     Route: 048
     Dates: start: 20210724, end: 20210724

REACTIONS (4)
  - Drug abuse [Recovering/Resolving]
  - Language disorder [Recovering/Resolving]
  - Dyskinesia [Recovering/Resolving]
  - Sopor [Recovering/Resolving]

NARRATIVE: CASE EVENT DATE: 20210725
